FAERS Safety Report 7042529-6 (Version None)
Quarter: 2010Q4

REPORT INFORMATION
  Report Type: 
  Country: None (occurrence: None)
  Receive Date: 20101013
  Receipt Date: 20090914
  Transmission Date: 20110411
  Serious: No
  Sender: FDA-Public Use
  Company Number: US-ASTRAZENECA-2009SE13292

PATIENT
  Age: 40 Year
  Sex: Female

DRUGS (3)
  1. SYMBICORT [Suspect]
     Indication: ASTHMA
     Dosage: 2 PUFFS BID
     Route: 055
     Dates: start: 20090722, end: 20090801
  2. SYMBICORT [Suspect]
     Dosage: 1 PUFF BID
     Route: 055
     Dates: start: 20090801, end: 20090912
  3. BIRHT CONTROL PILLS [Concomitant]

REACTIONS (7)
  - ARRHYTHMIA [None]
  - DIZZINESS [None]
  - NERVOUS SYSTEM DISORDER [None]
  - NIGHT SWEATS [None]
  - RESTLESSNESS [None]
  - TACHYCARDIA [None]
  - TREMOR [None]
